FAERS Safety Report 22340789 (Version 1)
Quarter: 2023Q2

REPORT INFORMATION
  Report Type: Other
  Country: None (occurrence: ES)
  Receive Date: 20230518
  Receipt Date: 20230518
  Transmission Date: 20230721
  Serious: Yes (Hospitalization)
  Sender: FDA-Public Use
  Company Number: ES-B.Braun Medical Inc.-2141678

PATIENT
  Age: 15 Year
  Sex: Male

DRUGS (5)
  1. CEFTRIAXONE SODIUM [Suspect]
     Active Substance: CEFTRIAXONE SODIUM
  2. GENTAMICIN [Suspect]
     Active Substance: GENTAMICIN
  3. DIPYRONE [Suspect]
     Active Substance: DIPYRONE
  4. TEICOPLANIN [Suspect]
     Active Substance: TEICOPLANIN
  5. VANCOMYCIN [Suspect]
     Active Substance: VANCOMYCIN

REACTIONS (1)
  - Drug reaction with eosinophilia and systemic symptoms [Recovering/Resolving]
